FAERS Safety Report 4703145-1 (Version None)
Quarter: 2005Q2

REPORT INFORMATION
  Report Type: 
  Country: None (occurrence: None)
  Receive Date: 20050629
  Receipt Date: 20040527
  Transmission Date: 20051028
  Serious: Yes (Life-Threatening, Hospitalization)
  Sender: FDA-Public Use
  Company Number: 2004009661

PATIENT
  Age: 47 Year
  Sex: Female
  Weight: 50 kg

DRUGS (1)
  1. LAMICTAL [Suspect]
     Dosage: 40TAB SINGLE DOSE
     Route: 048
     Dates: start: 20040526

REACTIONS (7)
  - CONVULSION [None]
  - DEPRESSED LEVEL OF CONSCIOUSNESS [None]
  - DISTURBANCE IN ATTENTION [None]
  - INTENTIONAL MISUSE [None]
  - PSYCHOTIC DISORDER [None]
  - SHOCK [None]
  - SUICIDE ATTEMPT [None]
